FAERS Safety Report 8845026 (Version 1)
Quarter: 2012Q4

REPORT INFORMATION
  Report Type: 
  Country: US (occurrence: US)
  Receive Date: 20121017
  Receipt Date: 20121017
  Transmission Date: 20130627
  Serious: Yes (Other)
  Sender: FDA-Public Use
  Company Number: US-PFIZER INC-2012258203

PATIENT
  Age: 45 Year
  Sex: Female
  Weight: 99.77 kg

DRUGS (5)
  1. ZOLOFT [Suspect]
     Indication: DEPRESSION
     Dosage: 100 mg, 1x/day
     Route: 048
  2. NEURONTIN [Concomitant]
     Dosage: UNK
  3. PROPRANOLOL [Concomitant]
     Dosage: UNK
  4. ZANTAC [Concomitant]
     Dosage: UNK
  5. NORCO [Concomitant]
     Dosage: UNK

REACTIONS (4)
  - Fall [Unknown]
  - Nerve injury [Unknown]
  - Feeling abnormal [Unknown]
  - Hypersensitivity [Unknown]
